FAERS Safety Report 8640425 (Version 2)
Quarter: 2012Q4

REPORT INFORMATION
  Report Type: 
  Country: US (occurrence: US)
  Receive Date: 20120628
  Receipt Date: 20121003
  Transmission Date: 20130627
  Serious: Yes (Other)
  Sender: FDA-Public Use
  Company Number: US-PFIZER INC-2012153860

PATIENT
  Age: 56 Year
  Sex: Female
  Weight: 81 kg

DRUGS (4)
  1. GEODON [Suspect]
     Indication: BIPOLAR DISORDER
     Dosage: 40 mg, 2x/day
     Dates: end: 2012
  2. GEODON [Suspect]
     Dosage: UNK
     Dates: start: 2012
  3. PAXIL [Concomitant]
     Dosage: 30 mg, 1x/day
  4. LORAZEPAM [Concomitant]
     Dosage: 2 mg, 2x/day

REACTIONS (2)
  - Activities of daily living impaired [Unknown]
  - Feeling abnormal [Recovered/Resolved]
